FAERS Safety Report 18114774 (Version 6)
Quarter: 2025Q4

REPORT INFORMATION
  Report Type: Report from Study
  Country: US (occurrence: US)
  Receive Date: 20200805
  Receipt Date: 20251222
  Transmission Date: 20260117
  Serious: Yes (Other)
  Sender: PFIZER
  Company Number: US-PFIZER INC-2020294685

PATIENT
  Age: 65 Year
  Sex: Female
  Weight: 79.38 kg

DRUGS (2)
  1. XELJANZ XR [Suspect]
     Active Substance: TOFACITINIB CITRATE
     Indication: Rheumatoid arthritis
     Dosage: 11 MG, DAILY
     Route: 048
  2. XELJANZ XR [Suspect]
     Active Substance: TOFACITINIB CITRATE
     Dosage: 11 MG, 1X/DAY, AT NIGHT
     Route: 048

REACTIONS (4)
  - Cataract [Unknown]
  - Herpes zoster [Unknown]
  - Urinary tract infection bacterial [Unknown]
  - Cystitis [Recovering/Resolving]
